FAERS Safety Report 9974700 (Version 1)
Quarter: 2014Q1

REPORT INFORMATION
  Report Type: Report from Study
  Country: US (occurrence: US)
  Receive Date: 20140306
  Receipt Date: 20140306
  Transmission Date: 20141002
  Serious: No
  Sender: FDA-Public Use
  Company Number: US-ABBVIE-13P-163-1159084-00

PATIENT
  Age: 31 Year
  Sex: Female

DRUGS (8)
  1. HUMIRA [Suspect]
     Indication: CROHN^S DISEASE
     Dates: start: 20130920, end: 20130920
  2. HUMIRA [Suspect]
     Dates: start: 20131004
  3. CLONAZEPAM [Concomitant]
     Indication: RESTLESS LEGS SYNDROME
  4. CLONIDINE [Concomitant]
     Indication: RESTLESS LEGS SYNDROME
     Dosage: WEARS 2 PATCHES
  5. NEURONTIN [Concomitant]
     Indication: FIBROMYALGIA
  6. AMBIEN [Concomitant]
     Indication: INSOMNIA
  7. PROZAC [Concomitant]
     Indication: DEPRESSION
  8. DICYCLOMINE [Concomitant]
     Indication: CROHN^S DISEASE
     Dosage: 20 MG FOUR TIMES A DAY AS NEEDED

REACTIONS (1)
  - Drug ineffective [Not Recovered/Not Resolved]
